FAERS Safety Report 16858465 (Version 1)
Quarter: 2019Q3

REPORT INFORMATION
  Report Type: Spontaneous
  Country: US (occurrence: US)
  Receive Date: 20190926
  Receipt Date: 20190926
  Transmission Date: 20191005
  Serious: No
  Sender: FDA-Public Use
  Company Number: US-ROMARKLABS-2019-US-000042

PATIENT
  Age: 54 Year
  Sex: Female

DRUGS (1)
  1. ALINIA [Suspect]
     Active Substance: NITAZOXANIDE
     Indication: BACTERIAL INFECTION
     Dosage: 1 TABLET EVERY 12 HOURS
     Route: 048
     Dates: start: 201807

REACTIONS (1)
  - Headache [Unknown]
